FAERS Safety Report 9758672 (Version 1)
Quarter: 2013Q4

REPORT INFORMATION
  Report Type: Spontaneous
  Country: US (occurrence: None)
  Receive Date: 20131216
  Receipt Date: 20131216
  Transmission Date: 20140711
  Serious: Yes (Other)
  Sender: FDA-Public Use
  Company Number: 2013US-69426

PATIENT
  Sex: Male

DRUGS (1)
  1. ABSORICA [Suspect]
     Dosage: UNK, UNKNOWN

REACTIONS (4)
  - Depression [None]
  - Vision blurred [None]
  - Disturbance in attention [None]
  - Fatigue [None]
